FAERS Safety Report 7507367-6 (Version None)
Quarter: 2011Q2

REPORT INFORMATION
  Report Type: 
  Country: None (occurrence: None)
  Receive Date: 20110526
  Receipt Date: 20110517
  Transmission Date: 20111010
  Serious: Yes (Hospitalization)
  Sender: FDA-Public Use
  Company Number: CA-BAXTER-2011BH014605

PATIENT
  Sex: Male

DRUGS (1)
  1. DIANEAL PD-1 [Suspect]
     Indication: PERITONEAL DIALYSIS
     Route: 033

REACTIONS (3)
  - ABDOMINAL DISTENSION [None]
  - INITIAL INSOMNIA [None]
  - MYOCARDIAL INFARCTION [None]
